FAERS Safety Report 6044465-0 (Version None)
Quarter: 2009Q1

REPORT INFORMATION
  Report Type: 
  Country: None (occurrence: None)
  Receive Date: 20090120
  Receipt Date: 20071221
  Transmission Date: 20090719
  Serious: Yes (Other)
  Sender: FDA-Public Use
  Company Number: FR-NOVOPROD-268776

PATIENT
  Age: 15 Year
  Sex: Male
  Weight: 49 kg

DRUGS (6)
  1. NORDITROPIN [Suspect]
     Indication: FOETAL GROWTH RETARDATION
     Dosage: 2.2 MG, QD
     Route: 058
     Dates: start: 20060719, end: 20070110
  2. NORDITROPIN [Suspect]
     Dosage: 2.5 MG, QD
     Dates: start: 20070110, end: 20070710
  3. NORDITROPIN [Suspect]
     Dosage: 3 MG, QD
     Route: 058
     Dates: start: 20070710, end: 20071022
  4. CLAMOXYL                           /00249601/ [Concomitant]
     Indication: DRUG USE FOR UNKNOWN INDICATION
     Dosage: 2 G, UNK
     Route: 048
     Dates: start: 20071014, end: 20071022
  5. AERIUS                             /01009701/ [Concomitant]
     Indication: RESPIRATORY DISORDER
     Dosage: 5 MG, UNK
     Route: 048
     Dates: start: 20071001, end: 20071022
  6. VENTOLIN [Concomitant]
     Indication: RESPIRATORY DISORDER
     Dosage: UNK, UNK
     Dates: start: 20071014, end: 20071018

REACTIONS (4)
  - BENIGN INTRACRANIAL HYPERTENSION [None]
  - HEADACHE [None]
  - PAPILLOEDEMA [None]
  - VISUAL ACUITY REDUCED [None]
